FAERS Safety Report 10038025 (Version 1)
Quarter: 2014Q1

REPORT INFORMATION
  Report Type: Spontaneous
  Country: US (occurrence: None)
  Receive Date: 20140325
  Receipt Date: 20140325
  Transmission Date: 20141002
  Serious: Yes (Hospitalization)
  Sender: FDA-Public Use
  Company Number: None

PATIENT
  Age: 50 Year
  Sex: Male
  Weight: 72.1 kg

DRUGS (5)
  1. POMALIDOMIDE [Suspect]
     Route: 048
     Dates: start: 20120424
  2. ASA [Concomitant]
  3. DAILY MULTIVITAMINS [Concomitant]
  4. MS CONTIN [Concomitant]
  5. ROXICODONE [Concomitant]

REACTIONS (4)
  - Sickle cell anaemia with crisis [None]
  - Osteomyelitis [None]
  - Condition aggravated [None]
  - Refusal of treatment by patient [None]
